FAERS Safety Report 8260305-3 (Version None)
Quarter: 2012Q2

REPORT INFORMATION
  Report Type: 
  Country: None (occurrence: None)
  Receive Date: 20120404
  Receipt Date: 20120323
  Transmission Date: 20120825
  Serious: Yes (Other)
  Sender: FDA-Public Use
  Company Number: PL-ROCHE-1051419

PATIENT
  Age: 82 Year
  Sex: Female

DRUGS (4)
  1. POLOCARD [Concomitant]
  2. METOPROLOL TARTRATE [Concomitant]
  3. BONIVA [Suspect]
     Indication: PRODUCT USED FOR UNKNOWN INDICATION
     Route: 042
  4. AGAPURIN [Concomitant]

REACTIONS (5)
  - PALLOR [None]
  - MYELODYSPLASTIC SYNDROME [None]
  - HAEMOGLOBIN DECREASED [None]
  - ASTHENIA [None]
  - ANAEMIA [None]
